FAERS Safety Report 9279346 (Version 2)
Quarter: 2013Q2

REPORT INFORMATION
  Report Type: Spontaneous
  Country: US (occurrence: US)
  Receive Date: 20130508
  Receipt Date: 20130611
  Transmission Date: 20140414
  Serious: Yes (Other)
  Sender: FDA-Public Use
  Company Number: US-TEVA-402635USA

PATIENT
  Age: 53 Year
  Sex: Female

DRUGS (15)
  1. NUVIGIL [Suspect]
     Route: 048
  2. NUVIGIL [Suspect]
     Route: 048
  3. NEXIUM [Concomitant]
  4. NEURONTIN [Concomitant]
  5. DILTIAZEM HYDROCHLORIDE [Concomitant]
  6. METOPROLOL TARTRATE [Concomitant]
  7. ZOLOFT [Concomitant]
  8. LEVOTHYROXINE [Concomitant]
  9. CYTOMEL [Concomitant]
  10. PRAVASTATIN [Concomitant]
  11. GLUCOPHAGE [Concomitant]
  12. VITAMIN D [Concomitant]
  13. ADIPEX [Concomitant]
  14. FISH OIL [Concomitant]
  15. XUREM [Concomitant]

REACTIONS (2)
  - Rash [Not Recovered/Not Resolved]
  - Scar [Not Recovered/Not Resolved]
